FAERS Safety Report 21974683 (Version 1)
Quarter: 2023Q1

REPORT INFORMATION
  Report Type: Spontaneous
  Country: US (occurrence: None)
  Receive Date: 20230208
  Receipt Date: 20230208
  Transmission Date: 20230417
  Serious: No
  Sender: FDA-Public Use
  Company Number: None

PATIENT
  Age: 60 Year
  Sex: Female

DRUGS (3)
  1. LIDOCAINE [Suspect]
     Active Substance: LIDOCAINE
     Indication: Back pain
     Dosage: OTHER QUANTITY : 2 2 PATCHES;?FREQUENCY : DAILY;?
     Route: 062
     Dates: start: 20230105, end: 20230208
  2. DILTIAZEM [Concomitant]
     Active Substance: DILTIAZEM
  3. DEXLANSOPRAZOLE [Concomitant]
     Active Substance: DEXLANSOPRAZOLE

REACTIONS (4)
  - Product physical consistency issue [None]
  - Product adhesion issue [None]
  - Drug ineffective [None]
  - Device difficult to use [None]

NARRATIVE: CASE EVENT DATE: 20230208
